FAERS Safety Report 10357654 (Version 1)
Quarter: 2014Q3

REPORT INFORMATION
  Report Type: Spontaneous
  Country: BR (occurrence: BR)
  Receive Date: 20140801
  Receipt Date: 20140801
  Transmission Date: 20150326
  Serious: Yes (Other)
  Sender: FDA-Public Use
  Company Number: BR-PFIZER INC-2014211015

PATIENT
  Age: 38 Year
  Sex: Female
  Weight: 48 kg

DRUGS (1)
  1. XALATAN [Suspect]
     Active Substance: LATANOPROST
     Indication: GLAUCOMA
     Dosage: 1 DROP IN EACH EYE ,1X/DAY
     Route: 047
     Dates: start: 20140525

REACTIONS (4)
  - Intraocular pressure increased [Unknown]
  - Eye disorder [Unknown]
  - Lymphoma [Unknown]
  - Madarosis [Unknown]

NARRATIVE: CASE EVENT DATE: 2014
